FAERS Safety Report 16502005 (Version 2)
Quarter: 2019Q3

REPORT INFORMATION
  Report Type: Spontaneous
  Country: BG (occurrence: BG)
  Receive Date: 20190701
  Receipt Date: 20190718
  Transmission Date: 20191004
  Serious: Yes (Other)
  Sender: FDA-Public Use
  Company Number: BG-AMGEN-BGRSP2019100760

PATIENT
  Age: 59 Year
  Sex: Male
  Weight: 80 kg

DRUGS (11)
  1. ZOLEDRONIC ACID [Concomitant]
     Active Substance: ZOLEDRONIC ACID
     Indication: PROSTATE CANCER
     Dosage: UNK
     Dates: start: 20150313, end: 20160329
  2. XGEVA [Suspect]
     Active Substance: DENOSUMAB
     Indication: PROSTATE CANCER
  3. PREDNISOLONE. [Concomitant]
     Active Substance: PREDNISOLONE
     Indication: PROSTATE CANCER
     Dosage: UNK
     Dates: start: 20190422
  4. DOCETAXEL. [Concomitant]
     Active Substance: DOCETAXEL
     Indication: PROSTATE CANCER
     Dosage: UNK
     Dates: start: 201802, end: 201806
  5. ENZALUTAMIDE [Concomitant]
     Active Substance: ENZALUTAMIDE
     Indication: PROSTATE CANCER
     Dosage: UNK
     Dates: start: 20160329
  6. ELIGARD [Concomitant]
     Active Substance: LEUPROLIDE ACETATE
     Indication: PROSTATE CANCER
     Dosage: UNK
     Dates: start: 20190422
  7. XGEVA [Suspect]
     Active Substance: DENOSUMAB
     Indication: METASTASES TO BONE
     Dosage: 120 MILLIGRAM, EVERY 28 DAYS
     Route: 058
     Dates: start: 20160329
  8. BICALUTAMIDE. [Concomitant]
     Active Substance: BICALUTAMIDE
     Indication: PROSTATE CANCER
     Dosage: UNK
     Dates: start: 20150313
  9. ABIRATERONE ACETATE. [Concomitant]
     Active Substance: ABIRATERONE ACETATE
     Indication: PROSTATE CANCER
     Dosage: UNK
     Dates: start: 20190422
  10. BUSERELIN ACETATE [Concomitant]
     Active Substance: BUSERELIN ACETATE
     Indication: PROSTATE CANCER
     Dosage: UNK
     Dates: start: 20150313
  11. CABAZITAXEL [Concomitant]
     Active Substance: CABAZITAXEL
     Indication: PROSTATE CANCER
     Dosage: UNK
     Dates: start: 20180714, end: 20190329

REACTIONS (1)
  - Prostate cancer metastatic [Unknown]

NARRATIVE: CASE EVENT DATE: 20190422
